FAERS Safety Report 8113834 (Version 4)
Quarter: 2012Q4

REPORT INFORMATION
  Report Type: 
  Country: US (occurrence: US)
  Receive Date: 20110830
  Receipt Date: 20121018
  Transmission Date: 20130627
  Serious: Yes (Other)
  Sender: FDA-Public Use
  Company Number: US-BAYER-2011-078119

PATIENT
  Age: 37 Year
  Sex: Female
  Weight: 69 kg

DRUGS (14)
  1. YASMIN [Suspect]
     Indication: CONTRACEPTION
     Dosage: UNK
     Dates: start: 20060208, end: 20090918
  2. YASMIN [Suspect]
     Indication: DYSMENORRHOEA
  3. OCELLA [Suspect]
     Indication: CONTRACEPTION
     Dosage: UNK
     Dates: start: 20080912, end: 20081113
  4. PAXIL [Concomitant]
     Indication: ANXIETY
     Dosage: UNK
     Dates: start: 1999
  5. PAXIL [Concomitant]
     Indication: DEPRESSION
  6. XANAX [Concomitant]
     Indication: ANXIETY
     Dosage: UNK
     Dates: start: 1999
  7. AMBIEN [Concomitant]
     Indication: INSOMNIA
     Dosage: UNK
     Dates: start: 2004
  8. NEXIUM [Concomitant]
     Dosage: 40 mg, UNK
     Dates: start: 20070812, end: 20071105
  9. FLUOCINONIDE [Concomitant]
     Dosage: UNK
     Dates: start: 20070818
  10. NASONEX [Concomitant]
     Dosage: UNK
     Dates: start: 20070821
  11. PAROXETINE [Concomitant]
     Dosage: UNK
     Dates: start: 20070821
  12. ALPRAZOLAM [Concomitant]
     Dosage: 1 mg, UNK
     Dates: start: 20070908
  13. LYRICA [Concomitant]
  14. BENTYL [Concomitant]

REACTIONS (3)
  - Cholecystitis chronic [None]
  - Gallbladder disorder [None]
  - Injury [None]
